FAERS Safety Report 4519011-0 (Version None)
Quarter: 2004Q4

REPORT INFORMATION
  Report Type: 
  Country: None (occurrence: None)
  Receive Date: 20041203
  Receipt Date: 20041203
  Transmission Date: 20050328
  Serious: Yes (Other)
  Sender: FDA-Public Use
  Company Number: None

PATIENT
  Age: 75 Year
  Sex: Male
  Weight: 52.1637 kg

DRUGS (4)
  1. HUMIRA [Suspect]
     Indication: RHEUMATOID ARTHRITIS
     Dosage: 40MG  EVERY 2 WKS
     Dates: start: 20030601, end: 20041108
  2. METHOTREXATE [Concomitant]
  3. SINEMET [Concomitant]
  4. FOSAMAX [Concomitant]

REACTIONS (3)
  - BRONCHITIS [None]
  - NON-SMALL CELL LUNG CANCER [None]
  - RECURRENT CANCER [None]
